FAERS Safety Report 6836813-6 (Version None)
Quarter: 2010Q3

REPORT INFORMATION
  Report Type: 
  Country: None (occurrence: None)
  Receive Date: 20100713
  Receipt Date: 20070430
  Transmission Date: 20110219
  Serious: No
  Sender: FDA-Public Use
  Company Number: US-PFIZER INC-2007036169

PATIENT
  Sex: Female
  Weight: 57.7 kg

DRUGS (9)
  1. CHANTIX [Suspect]
     Indication: SMOKING CESSATION THERAPY
     Dates: start: 20070401, end: 20070419
  2. HYDROCODONE BITARTRATE [Interacting]
     Indication: PAIN
     Dates: start: 20070301, end: 20070419
  3. VERAPAMIL [Concomitant]
  4. ACETYLSALICYLIC ACID [Concomitant]
  5. ADVAIR DISKUS 100/50 [Concomitant]
  6. METHYLPREDNISOLONE ACETATE [Concomitant]
     Indication: MUSCLE STRAIN
  7. AZITHROMYCIN [Concomitant]
  8. TYLENOL [Concomitant]
  9. DRUG, UNSPECIFIED [Concomitant]

REACTIONS (3)
  - DRUG INTERACTION [None]
  - NAUSEA [None]
  - VOMITING [None]
